FAERS Safety Report 22026587 (Version 1)
Quarter: 2023Q1

REPORT INFORMATION
  Report Type: Spontaneous
  Country: US (occurrence: US)
  Receive Date: 20230223
  Receipt Date: 20230223
  Transmission Date: 20230418
  Serious: No
  Sender: FDA-Public Use
  Company Number: US-Accord-294352

PATIENT
  Sex: Female

DRUGS (1)
  1. VILAZODONE HYDROCHLORIDE [Suspect]
     Active Substance: VILAZODONE HYDROCHLORIDE
     Indication: Product used for unknown indication
     Dosage: ALMOST TWO WEEKS AGO

REACTIONS (4)
  - Anxiety [Unknown]
  - Depressed mood [Unknown]
  - Product substitution issue [Unknown]
  - Drug effect less than expected [Unknown]
